FAERS Safety Report 9476519 (Version 1)
Quarter: 2013Q3

REPORT INFORMATION
  Report Type: Spontaneous
  Country: US (occurrence: None)
  Receive Date: 20130823
  Receipt Date: 20130823
  Transmission Date: 20140515
  Serious: Yes (Hospitalization)
  Sender: FDA-Public Use
  Company Number: None

PATIENT
  Age: 42 Year
  Sex: Female
  Weight: 48.2 kg

DRUGS (5)
  1. COPAXONE [Suspect]
     Indication: MULTIPLE SCLEROSIS
     Route: 058
     Dates: start: 201305
  2. VIT D3 [Concomitant]
  3. MULTIVITAMIN [Concomitant]
  4. IBUPROFEN [Concomitant]
  5. GLUCO/CHOND [Concomitant]

REACTIONS (5)
  - Abdominal pain [None]
  - Muscle twitching [None]
  - Dysarthria [None]
  - Hepatic enzyme increased [None]
  - Ovarian cyst ruptured [None]
